FAERS Safety Report 16403635 (Version 6)
Quarter: 2019Q3

REPORT INFORMATION
  Report Type: Report from Study
  Country: US (occurrence: US)
  Receive Date: 20190607
  Receipt Date: 20190830
  Transmission Date: 20191004
  Serious: Yes (Hospitalization)
  Sender: FDA-Public Use
  Company Number: US-ROCHE-2331813

PATIENT
  Age: 34 Year
  Sex: Female
  Weight: 51.5 kg

DRUGS (12)
  1. IBRUTINIB [Suspect]
     Active Substance: IBRUTINIB
     Indication: B-CELL LYMPHOMA
     Dosage: LAST DOSE PRIOR TO AE ONSET (BLOOD BILIRUBIN INCREASED): 21/MAY/2019?LAST DOSE PRIOR TO AE ONSET (FE
     Route: 048
     Dates: start: 20190318
  2. RITUXIMAB. [Suspect]
     Active Substance: RITUXIMAB
     Indication: B-CELL LYMPHOMA
     Route: 065
     Dates: start: 201512
  3. VENETOCLAX. [Suspect]
     Active Substance: VENETOCLAX
     Route: 048
     Dates: start: 201803, end: 201901
  4. RITUXIMAB. [Suspect]
     Active Substance: RITUXIMAB
     Route: 065
     Dates: start: 201706
  5. IBRUTINIB [Suspect]
     Active Substance: IBRUTINIB
     Route: 048
     Dates: start: 201901
  6. LENALIDOMIDE [Suspect]
     Active Substance: LENALIDOMIDE
     Indication: B-CELL LYMPHOMA
     Dosage: LAST DOSE PRIOR TO AE ONSET (BLOOD BILIRUBIN INCREASED): 21/MAY/2019?LAST DOSE PRIOR TO AE ONSET (FE
     Route: 048
     Dates: start: 20190318
  7. PREDNISONE. [Suspect]
     Active Substance: PREDNISONE
     Dosage: X 5 DAYS
     Route: 048
     Dates: start: 20190522, end: 20190526
  8. OBINUTUZUMAB. [Suspect]
     Active Substance: OBINUTUZUMAB
     Indication: B-CELL LYMPHOMA
     Dosage: LAST DOSE PRIOR TO AE ONSET (BLOOD BILIRUBIN INCREASED): 11/MAY/2019?LAST DOSE PRIOR TO AE ONSET (FE
     Route: 042
     Dates: start: 20190318, end: 20190718
  9. VENETOCLAX. [Suspect]
     Active Substance: VENETOCLAX
     Indication: B-CELL LYMPHOMA
     Dosage: LAST DOSE PRIOR TO AE ONSET (BLOOD BILIRUBIN INCREASED): 21/MAY/2019?LAST DOSE PRIOR TO AE ONSET (FE
     Route: 048
     Dates: start: 20190319, end: 20190730
  10. PREDNISONE. [Suspect]
     Active Substance: PREDNISONE
     Route: 048
     Dates: start: 20190528
  11. RITUXIMAB. [Suspect]
     Active Substance: RITUXIMAB
     Route: 065
  12. PREDNISONE. [Suspect]
     Active Substance: PREDNISONE
     Indication: B-CELL LYMPHOMA
     Dosage: LAST DOSE PRIOR TO AE ONSET (BLOOD BILIRUBIN INCREASED): 17/MAY/2019?LAST DOSE PRIOR TO AE ONSET (FE
     Route: 048
     Dates: start: 20190318

REACTIONS (3)
  - Blood bilirubin increased [Recovered/Resolved]
  - Biliary tract infection [Recovered/Resolved]
  - Pyrexia [Recovered/Resolved]

NARRATIVE: CASE EVENT DATE: 20190530
